FAERS Safety Report 9840097 (Version 1)
Quarter: 2013Q4

REPORT INFORMATION
  Report Type: Spontaneous
  Country: US (occurrence: None)
  Receive Date: 20131206
  Receipt Date: 20131206
  Transmission Date: 20140711
  Serious: Yes (Other)
  Sender: FDA-Public Use
  Company Number: 1000042624

PATIENT
  Age: 81 Year
  Sex: Female

DRUGS (5)
  1. NAMENDA (MEMANTINE HYDROCHLORIDE) [Suspect]
     Indication: DEMENTIA ALZHEIMER^S TYPE
     Route: 048
     Dates: start: 20100921, end: 20100928
  2. LIPITOR (ATORVASTATIN CALCIUM) [Concomitant]
  3. INDOMETHACIN [Concomitant]
  4. LEVETIRACETAM [Concomitant]
  5. TRIAMTERENE-HYDROCHLOROTHIAZIDE [Concomitant]

REACTIONS (2)
  - Convulsion [None]
  - Blood potassium decreased [None]
